FAERS Safety Report 18511448 (Version 1)
Quarter: 2020Q4

REPORT INFORMATION
  Report Type: Spontaneous
  Country: GB (occurrence: GB)
  Receive Date: 20201117
  Receipt Date: 20201117
  Transmission Date: 20210114
  Serious: Yes (Other)
  Sender: FDA-Public Use
  Company Number: GB-TEVA-2020-GB-1848165

PATIENT
  Age: 30 Year
  Sex: Female
  Weight: 57.15 kg

DRUGS (2)
  1. RIGEVIDON [Concomitant]
  2. FLUCONAZOLE. [Suspect]
     Active Substance: FLUCONAZOLE
     Indication: CANDIDA INFECTION
     Dosage: 150 MG
     Route: 048
     Dates: start: 20201017, end: 20201017

REACTIONS (4)
  - Pruritus [Recovering/Resolving]
  - Skin irritation [Unknown]
  - Skin burning sensation [Recovering/Resolving]
  - Blister [Not Recovered/Not Resolved]

NARRATIVE: CASE EVENT DATE: 20201017
